FAERS Safety Report 7404879-0 (Version None)
Quarter: 2011Q2

REPORT INFORMATION
  Report Type: 
  Country: None (occurrence: None)
  Receive Date: 20110411
  Receipt Date: 20110404
  Transmission Date: 20111010
  Serious: Yes (Death)
  Sender: FDA-Public Use
  Company Number: NL-JNJFOC-20110201033

PATIENT

DRUGS (6)
  1. CARBOPLATIN [Suspect]
     Indication: HEPATOBLASTOMA
     Dosage: AUC 10.6 MG/ML.MIN/DAY ON DAYS 1 AND 22
     Route: 065
  2. CARBOPLATIN [Suspect]
     Dosage: AUC 6.6 MG/ML.MIN/DAY ON DAYS 1, 22 AND 43
     Route: 065
  3. CAELYX [Suspect]
     Dosage: ON DAY 8 AND 9
     Route: 042
  4. CAELYX [Suspect]
     Indication: HEPATOBLASTOMA
     Dosage: PER DAY ON DAYS 1, 2, 22, 23, 43 AND 44
     Route: 042
  5. CAELYX [Suspect]
     Dosage: PER DAY ON DAYS 1, 2, 3, 22, 23 AND 24
     Route: 042
  6. CISPLATIN [Suspect]
     Indication: HEPATOBLASTOMA
     Dosage: PER DAY ON DAYS 1, 8 AND 15
     Route: 065

REACTIONS (2)
  - FUNGAL INFECTION [None]
  - OFF LABEL USE [None]
